FAERS Safety Report 10255148 (Version 3)
Quarter: 2015Q1

REPORT INFORMATION
  Report Type: Spontaneous
  Country: BR (occurrence: BR)
  Receive Date: 20140624
  Receipt Date: 20150107
  Transmission Date: 20150720
  Serious: Yes (Other)
  Sender: FDA-Public Use
  Company Number: BR-PFIZER INC-2014170096

PATIENT
  Age: 70 Year
  Sex: Female
  Weight: 76 kg

DRUGS (14)
  1. INDAPEN SR [Suspect]
     Active Substance: INDAPAMIDE
     Indication: HYPERTENSION
     Dosage: 1.5 MG, 1X/DAY
     Route: 048
  2. PURAN [Suspect]
     Active Substance: LEVOTHYROXINE SODIUM
     Indication: THYROID DISORDER
     Dosage: 112 UG, UNK
     Route: 048
  3. PURAN [Suspect]
     Active Substance: LEVOTHYROXINE SODIUM
     Dosage: 88 UG, UNK
     Route: 048
  4. ARTRODAR [Suspect]
     Active Substance: DIACEREIN
     Indication: ARTHRITIS
     Dosage: 1 DF, 1X/DAY
     Route: 048
  5. OMEPRAZOLE. [Suspect]
     Active Substance: OMEPRAZOLE
     Indication: GASTRIC DISORDER
     Dosage: UNK
     Route: 048
  6. CAPTOPRIL. [Suspect]
     Active Substance: CAPTOPRIL
     Indication: HYPERTENSION
     Dosage: UNK
     Route: 048
  7. PURAN [Suspect]
     Active Substance: LEVOTHYROXINE SODIUM
     Dosage: 100 UG, 1X/DAY
     Route: 048
  8. GLIFAGE [Suspect]
     Active Substance: METFORMIN HYDROCHLORIDE
     Indication: DIABETES MELLITUS
     Dosage: 500 MG, 2X/DAY (AFTER LUNCH AND AFTER DINNER)
     Route: 048
  9. LOSARTAN POTASSIUM. [Suspect]
     Active Substance: LOSARTAN POTASSIUM
     Indication: HYPERTENSION
     Dosage: 100 MG, 1X/DAY
     Route: 048
  10. PROPRANOLOL [Suspect]
     Active Substance: PROPRANOLOL\PROPRANOLOL HYDROCHLORIDE
     Indication: HYPERTENSION
     Dosage: 80 MG, 1X/DAY
     Route: 048
  11. PANTOPRAZOLE [Suspect]
     Active Substance: PANTOPRAZOLE SODIUM
     Dosage: UNK
     Route: 048
  12. METFORMIN HCL [Suspect]
     Active Substance: METFORMIN HYDROCHLORIDE
     Indication: DIABETES MELLITUS
     Dosage: 3 DF, 1X/DAY
     Route: 048
  13. MONOCORDIL [Suspect]
     Active Substance: ISOSORBIDE MONONITRATE
     Dosage: UNK
     Route: 048
  14. GALVUS [Suspect]
     Active Substance: VILDAGLIPTIN
     Indication: DIABETES MELLITUS
     Dosage: 50 MG, 1X/DAY (IN THE MORNING)
     Route: 048

REACTIONS (7)
  - Lip dry [Recovering/Resolving]
  - Abdominal discomfort [Recovering/Resolving]
  - Dry throat [Recovering/Resolving]
  - Hyperthyroidism [Recovering/Resolving]
  - Overweight [Recovering/Resolving]
  - Blood glucose increased [Unknown]
  - Peripheral swelling [Recovering/Resolving]
